FAERS Safety Report 20450346 (Version 2)
Quarter: 2022Q3

REPORT INFORMATION
  Report Type: Spontaneous
  Country: CA (occurrence: CA)
  Receive Date: 20220209
  Receipt Date: 20220718
  Transmission Date: 20221027
  Serious: Yes (Other)
  Sender: FDA-Public Use
  Company Number: CA-MLMSERVICE-20220201-3344676-1

PATIENT
  Age: 31 Year
  Sex: Female

DRUGS (3)
  1. CIPROFLOXACIN [Suspect]
     Active Substance: CIPROFLOXACIN
  2. BOTULINUM TOXIN TYPE A [Suspect]
     Active Substance: BOTULINUM TOXIN TYPE A
     Indication: Hyperhidrosis
     Dosage: 50U IN EACH AXILLA (TOTAL OF 100U)
     Route: 023
  3. BOTULINUM TOXIN TYPE A [Suspect]
     Active Substance: BOTULINUM TOXIN TYPE A
     Indication: Hyperhidrosis
     Dosage: 100U OF ONABOTULINUM A INTO EACH OF HER PALMS (2:1 DILUTION) AND 50 U INTO EACH AXILLA (1:1 DILUTION
     Route: 023

REACTIONS (7)
  - Myopathy [Recovered/Resolved]
  - Botulism [Recovered/Resolved]
  - Fatigue [None]
  - Muscular weakness [None]
  - Dry mouth [None]
  - Vision blurred [None]
  - Headache [None]
